FAERS Safety Report 16327734 (Version 3)
Quarter: 2019Q3

REPORT INFORMATION
  Report Type: Spontaneous
  Country: US (occurrence: US)
  Receive Date: 20190517
  Receipt Date: 20190820
  Transmission Date: 20191004
  Serious: No
  Sender: FDA-Public Use
  Company Number: US-SHIRE-US201916149

PATIENT
  Sex: Female
  Weight: 86.17 kg

DRUGS (1)
  1. XIIDRA [Suspect]
     Active Substance: LIFITEGRAST
     Indication: DRY EYE
     Dosage: UNK UNK, 2X/DAY:BID
     Route: 047

REACTIONS (9)
  - Feeling abnormal [Not Recovered/Not Resolved]
  - Eye irritation [Recovering/Resolving]
  - Depressed mood [Unknown]
  - Lacrimation increased [Recovering/Resolving]
  - Off label use [Unknown]
  - Condition aggravated [Unknown]
  - Dysgeusia [Not Recovered/Not Resolved]
  - Stress [Unknown]
  - Hypoaesthesia [Recovering/Resolving]

NARRATIVE: CASE EVENT DATE: 2019
